FAERS Safety Report 14738048 (Version 4)
Quarter: 2018Q2

REPORT INFORMATION
  Report Type: Spontaneous
  Country: PL (occurrence: PL)
  Receive Date: 20180409
  Receipt Date: 20180619
  Transmission Date: 20180711
  Serious: Yes (Other)
  Sender: FDA-Public Use
  Company Number: PL-PFIZER INC-2018140492

PATIENT
  Age: 60 Year
  Sex: Female

DRUGS (12)
  1. ETRUZIL [Suspect]
     Active Substance: LETROZOLE
     Indication: BREAST CANCER METASTATIC
     Dosage: UNK
     Route: 065
     Dates: start: 201512, end: 201606
  2. DOCETAXEL. [Suspect]
     Active Substance: DOCETAXEL
     Indication: BREAST CANCER METASTATIC
     Dosage: 75 MG/M2, UNK
     Dates: start: 201608
  3. PERJETA [Suspect]
     Active Substance: PERTUZUMAB
     Indication: BREAST CANCER METASTATIC
     Dosage: 840 MG, UNK
     Dates: start: 201608
  4. HERCEPTIN [Suspect]
     Active Substance: TRASTUZUMAB
     Dosage: 6 MG/KG BW, UNK
     Dates: start: 201608
  5. NOLVADEX D [Suspect]
     Active Substance: TAMOXIFEN CITRATE
     Indication: BREAST CANCER METASTATIC
     Dosage: UNK
     Route: 065
     Dates: start: 20151113
  6. HERCEPTIN [Suspect]
     Active Substance: TRASTUZUMAB
     Indication: BREAST CANCER METASTATIC
     Dosage: UNK
     Dates: start: 201309, end: 20140914
  7. HERCEPTIN [Suspect]
     Active Substance: TRASTUZUMAB
     Dosage: 8 MG/KG BW, UNK
     Route: 065
     Dates: start: 201608
  8. XGEVA [Suspect]
     Active Substance: DENOSUMAB
     Indication: BREAST CANCER METASTATIC
     Dosage: UNK
     Route: 065
     Dates: start: 201608
  9. PERJETA [Suspect]
     Active Substance: PERTUZUMAB
     Dosage: 420 MG, UNK
     Route: 065
     Dates: start: 201608
  10. DOXORUBICIN HCL [Suspect]
     Active Substance: DOXORUBICIN HYDROCHLORIDE
     Indication: BREAST CANCER METASTATIC
     Dosage: UNK
     Route: 065
     Dates: start: 20130505, end: 20130910
  11. CYCLOPHOSPHAMIDE. [Suspect]
     Active Substance: CYCLOPHOSPHAMIDE
     Indication: BREAST CANCER METASTATIC
     Dosage: UNK
     Route: 065
     Dates: start: 20130505, end: 20130910
  12. DOCETAXEL. [Suspect]
     Active Substance: DOCETAXEL
     Dosage: 100 MG/M2, UNK
     Route: 065
     Dates: start: 201608

REACTIONS (4)
  - Osteolysis [Unknown]
  - Neoplasm progression [Unknown]
  - Bone disorder [Unknown]
  - Osteosclerosis [Unknown]

NARRATIVE: CASE EVENT DATE: 201607
